FAERS Safety Report 12473957 (Version 1)
Quarter: 2016Q2

REPORT INFORMATION
  Report Type: Spontaneous
  Country: ES (occurrence: ES)
  Receive Date: 20160616
  Receipt Date: 20160616
  Transmission Date: 20160815
  Serious: Yes (Other)
  Sender: FDA-Public Use
  Company Number: ES-FRESENIUS KABI-FK201603636

PATIENT
  Age: 8 Year
  Sex: Male

DRUGS (1)
  1. VALPROATE [Suspect]
     Active Substance: VALPROIC ACID
     Indication: PETIT MAL EPILEPSY
     Route: 042

REACTIONS (1)
  - Status epilepticus [Recovered/Resolved]
